FAERS Safety Report 7449284-6 (Version None)
Quarter: 2011Q2

REPORT INFORMATION
  Report Type: 
  Country: None (occurrence: None)
  Receive Date: 20110502
  Receipt Date: 20110421
  Transmission Date: 20111010
  Serious: No
  Sender: FDA-Public Use
  Company Number: US-BIOGENIDEC-2011BI007063

PATIENT
  Age: 36 Year
  Sex: Female

DRUGS (2)
  1. TYSABRI [Suspect]
     Indication: MULTIPLE SCLEROSIS
     Route: 042
     Dates: start: 20100625, end: 20101223
  2. TYSABRI [Suspect]
     Route: 042
     Dates: start: 20080731, end: 20081119

REACTIONS (3)
  - LIVER FUNCTION TEST ABNORMAL [None]
  - HEPATIC ENZYME INCREASED [None]
  - ASTHENIA [None]
